FAERS Safety Report 17699453 (Version 1)
Quarter: 2020Q2

REPORT INFORMATION
  Report Type: Spontaneous
  Country: JP (occurrence: JP)
  Receive Date: 20200423
  Receipt Date: 20200423
  Transmission Date: 20200714
  Serious: Yes (Other)
  Sender: FDA-Public Use
  Company Number: JP-PFIZER INC-2020160475

PATIENT
  Age: 84 Year
  Sex: Male

DRUGS (1)
  1. LYRICA [Suspect]
     Active Substance: PREGABALIN
     Dosage: 75 MG
     Dates: start: 201905, end: 201905

REACTIONS (3)
  - Dyslalia [Unknown]
  - Ataxia [Unknown]
  - Altered state of consciousness [Unknown]
